FAERS Safety Report 4689141-1 (Version None)
Quarter: 2005Q2

REPORT INFORMATION
  Report Type: 
  Country: None (occurrence: None)
  Receive Date: 20050613
  Receipt Date: 20050526
  Transmission Date: 20051028
  Serious: Yes (Other)
  Sender: FDA-Public Use
  Company Number: PHEH2005US05973

PATIENT
  Age: 68 Year
  Sex: Male

DRUGS (1)
  1. ZOMETA [Suspect]
     Dates: start: 20030101, end: 20050101

REACTIONS (10)
  - ASEPTIC NECROSIS BONE [None]
  - BONE DISORDER [None]
  - GINGIVAL DISORDER [None]
  - IMPAIRED HEALING [None]
  - OSTEOMYELITIS [None]
  - OSTEONECROSIS [None]
  - PRIMARY SEQUESTRUM [None]
  - PURULENCE [None]
  - TOOTH EXTRACTION [None]
  - WOUND DRAINAGE [None]
